FAERS Safety Report 9767851 (Version 1)
Quarter: 2013Q4

REPORT INFORMATION
  Report Type: Spontaneous
  Country: US (occurrence: US)
  Receive Date: 20131217
  Receipt Date: 20131217
  Transmission Date: 20140711
  Serious: Yes (Death)
  Sender: FDA-Public Use
  Company Number: US-INCYTE CORPORATION-2013IN003005

PATIENT
  Age: 68 Year
  Sex: Male
  Weight: 77.1 kg

DRUGS (9)
  1. JAKAFI [Suspect]
     Indication: LYMPHADENITIS
     Dosage: 20 MG, BID
     Route: 048
     Dates: start: 20130930
  2. JAKAFI [Suspect]
     Indication: ANAEMIA
  3. EXJADE [Concomitant]
  4. LUMIGAN [Concomitant]
  5. AZOPT [Concomitant]
  6. LISINOPRIL [Concomitant]
  7. ANAGRELIDE HCL [Concomitant]
  8. COLCRYS [Concomitant]
  9. PROCRIT                            /00909301/ [Concomitant]

REACTIONS (1)
  - Death [Fatal]
